FAERS Safety Report 10196374 (Version 1)
Quarter: 2014Q2

REPORT INFORMATION
  Report Type: Report from Study
  Country: US (occurrence: US)
  Receive Date: 20140527
  Receipt Date: 20140527
  Transmission Date: 20141212
  Serious: Yes (Hospitalization)
  Sender: FDA-Public Use
  Company Number: US-UCBSA-121889

PATIENT
  Age: 38 Year
  Sex: Female
  Weight: 58.8 kg

DRUGS (18)
  1. CIMZIA [Suspect]
     Indication: CROHN^S DISEASE
     Route: 058
     Dates: start: 20130828
  2. XANAX [Concomitant]
     Dosage: 1 TABLET DAILY
  3. BUSPAR [Concomitant]
  4. CELEXA [Concomitant]
     Dosage: 1 TABLET DAILY
  5. B12 [Concomitant]
     Dosage: MONTHLY
  6. CIPRO [Concomitant]
     Indication: CROHN^S DISEASE
     Dates: start: 20130913
  7. CIPRO [Concomitant]
     Indication: CROHN^S DISEASE
     Dates: start: 20120624, end: 20120629
  8. MULTIVITAMIN [Concomitant]
     Dosage: DAILY
  9. METHOTREXATE [Concomitant]
     Indication: CROHN^S DISEASE
     Dates: start: 20130904
  10. LOPRESSOR [Concomitant]
  11. PAMELOR [Concomitant]
  12. OMEPRAZOLE [Concomitant]
     Dosage: DAILY
  13. ZOFRAN [Concomitant]
     Dosage: PRN
  14. PREDNISONE [Concomitant]
     Indication: CROHN^S DISEASE
     Dates: start: 1993
  15. METHYLPREDNISOLONE [Concomitant]
     Indication: CROHN^S DISEASE
     Dates: start: 20131004
  16. METHYLPREDNISOLONE [Concomitant]
     Indication: CROHN^S DISEASE
     Dates: start: 201304, end: 201304
  17. METHYLPREDNISOLONE [Concomitant]
     Indication: CROHN^S DISEASE
     Dates: start: 201202, end: 201202
  18. FLAGYL [Concomitant]
     Indication: CROHN^S DISEASE
     Dates: start: 20130911

REACTIONS (1)
  - Clostridium difficile colitis [Recovered/Resolved]
